FAERS Safety Report 21705016 (Version 1)
Quarter: 2022Q4

REPORT INFORMATION
  Report Type: Spontaneous
  Country: None (occurrence: US)
  Receive Date: 20221209
  Receipt Date: 20221209
  Transmission Date: 20230113
  Serious: No
  Sender: FDA-Public Use
  Company Number: US-Ajanta Pharma USA Inc.-2135715

PATIENT
  Age: 78 Year
  Sex: Female
  Weight: 63.636 kg

DRUGS (1)
  1. CAPTOPRIL [Suspect]
     Active Substance: CAPTOPRIL
     Indication: Hypertension
     Route: 048
     Dates: start: 20220808

REACTIONS (2)
  - Product odour abnormal [Not Recovered/Not Resolved]
  - Product after taste [Not Recovered/Not Resolved]

NARRATIVE: CASE EVENT DATE: 20221001
